FAERS Safety Report 22232863 (Version 1)
Quarter: 2023Q2

REPORT INFORMATION
  Report Type: Spontaneous
  Country: MA (occurrence: MA)
  Receive Date: 20230420
  Receipt Date: 20230420
  Transmission Date: 20230722
  Serious: Yes (Hospitalization, Other)
  Sender: FDA-Public Use
  Company Number: MA-CPL-003355

PATIENT
  Age: 26 Year
  Sex: Male

DRUGS (2)
  1. FLUOXETINE [Suspect]
     Active Substance: FLUOXETINE HYDROCHLORIDE
     Indication: Anger
  2. OLANZAPINE [Suspect]
     Active Substance: OLANZAPINE
     Indication: Anger

REACTIONS (2)
  - Pulmonary embolism [Recovering/Resolving]
  - Lung disorder [Recovering/Resolving]
